FAERS Safety Report 6146862-1 (Version None)
Quarter: 2009Q2

REPORT INFORMATION
  Report Type: 
  Country: None (occurrence: None)
  Receive Date: 20090407
  Receipt Date: 20090407
  Transmission Date: 20091009
  Serious: Yes (Other)
  Sender: FDA-Public Use
  Company Number: US-PFIZER INC-2009156177

PATIENT
  Sex: Male

DRUGS (1)
  1. PHENYTOIN AND PHENYTOIN SODIUM [Suspect]

REACTIONS (1)
  - PETIT MAL EPILEPSY [None]
